FAERS Safety Report 9224770 (Version 1)
Quarter: 2013Q1

REPORT INFORMATION
  Report Type: Spontaneous
  Country: US (occurrence: None)
  Receive Date: 20120912
  Receipt Date: 20120912
  Transmission Date: 20140127
  Serious: No
  Sender: FDA-Public Use
  Company Number: 2012SP026233

PATIENT
  Age: 54 Year
  Sex: Female

DRUGS (3)
  1. VICTRELIS 200 MG [Suspect]
     Indication: HEPATITIS C
     Route: 048
     Dates: start: 20120212
  2. RIBAPAK [Suspect]
     Indication: HEPATITIS C
  3. PEGINTRON [Suspect]
     Indication: HEPATITIS C

REACTIONS (6)
  - Dyspepsia [None]
  - Headache [None]
  - Nausea [None]
  - Dizziness [None]
  - Anaemia [None]
  - Rash generalised [None]
